FAERS Safety Report 20508841 (Version 1)
Quarter: 2022Q1

REPORT INFORMATION
  Report Type: Spontaneous
  Country: US (occurrence: US)
  Receive Date: 20220223
  Receipt Date: 20220223
  Transmission Date: 20220424
  Serious: Yes (Life-Threatening)
  Sender: FDA-Public Use
  Company Number: US-BAUSCH-BL-2022-004886

PATIENT
  Age: 42 Year
  Sex: Female

DRUGS (14)
  1. RIFAXIMIN [Suspect]
     Active Substance: RIFAXIMIN
     Indication: Hepatic encephalopathy
     Route: 048
  2. SPIRONOLACTONE [Suspect]
     Active Substance: SPIRONOLACTONE
     Indication: Hepatic encephalopathy
     Route: 065
  3. SPIRONOLACTONE [Suspect]
     Active Substance: SPIRONOLACTONE
     Dosage: RESTART SPIRONOLACTONE
     Route: 065
  4. ZINC [Concomitant]
     Active Substance: ZINC
     Indication: Hepatic encephalopathy
     Route: 065
  5. FERROUS SULFATE [Concomitant]
     Active Substance: FERROUS SULFATE
     Indication: Hepatic encephalopathy
     Route: 065
  6. FERROUS SULFATE [Concomitant]
     Active Substance: FERROUS SULFATE
     Indication: Hepatitis alcoholic
  7. THIAMINE [Concomitant]
     Active Substance: THIAMINE
     Indication: Hepatitis alcoholic
     Route: 065
  8. THIAMINE [Concomitant]
     Active Substance: THIAMINE
     Indication: Hepatic encephalopathy
  9. LACTULOSE [Concomitant]
     Active Substance: LACTULOSE
     Indication: Hepatic encephalopathy
     Route: 065
  10. LACTULOSE [Concomitant]
     Active Substance: LACTULOSE
     Indication: Hepatitis alcoholic
  11. FUROSEMIDE [Concomitant]
     Active Substance: FUROSEMIDE
     Indication: Hepatic encephalopathy
     Route: 065
  12. FUROSEMIDE [Concomitant]
     Active Substance: FUROSEMIDE
     Indication: Hepatitis alcoholic
  13. FOLIC ACID [Concomitant]
     Active Substance: FOLIC ACID
     Indication: Hepatic encephalopathy
     Route: 065
  14. FOLIC ACID [Concomitant]
     Active Substance: FOLIC ACID
     Indication: Hepatitis alcoholic

REACTIONS (1)
  - SJS-TEN overlap [Recovering/Resolving]
